FAERS Safety Report 21435237 (Version 1)
Quarter: 2022Q4

REPORT INFORMATION
  Report Type: Spontaneous
  Country: CH (occurrence: CH)
  Receive Date: 20221010
  Receipt Date: 20221010
  Transmission Date: 20230112
  Serious: Yes (Other)
  Sender: FDA-Public Use
  Company Number: None

PATIENT
  Age: 30 Year
  Sex: Female
  Weight: 61.4 kg

DRUGS (9)
  1. SULFAMETHOXAZOLE\TRIMETHOPRIM [Suspect]
     Active Substance: SULFAMETHOXAZOLE\TRIMETHOPRIM
     Indication: Renal transplant
     Dosage: 80/400 MG (EQUIVALENT TO 10 ML) P.O. ON MONDAY, WEDNESDAY, FRIDAY, FREQUENCY TIME : 1 CYCLICAL
     Route: 048
  2. VALCYTE [Suspect]
     Active Substance: VALGANCICLOVIR HYDROCHLORIDE
     Indication: Renal transplant
     Dosage: 450 MG P.O. 1 TABLET ON WEDNESDAY AND ON SUNDAY
     Route: 048
     Dates: end: 20220808
  3. PROGRAF [Suspect]
     Active Substance: TACROLIMUS
     Indication: Renal transplant
     Dosage: UNIT DOSE : 0.5 MG   , FREQUENCY TIME : 2 DAYS; 1-0-1-0
     Route: 048
  4. CELLCEPT [Suspect]
     Active Substance: MYCOPHENOLATE MOFETIL
     Indication: Renal transplant
     Dosage: UNIT DOSE : 750 MG , FREQUENCY TIME : 2 DAYS, 1-0-1-0
     Route: 048
  5. PANTOZOL [Suspect]
     Active Substance: PANTOPRAZOLE SODIUM
     Indication: Renal transplant
     Dosage: 40 MILLIGRAM DAILY; 1-0-0-0
     Route: 048
     Dates: end: 20220808
  6. BELATACEPT [Suspect]
     Active Substance: BELATACEPT
     Indication: Renal transplant
     Dosage: CYCLICAL , UNIT DOSE : 300 MG , THERAPY END DATE : NASK
     Dates: start: 20220525
  7. PREDNISOLONE [Concomitant]
     Active Substance: PREDNISOLONE
     Indication: Renal transplant
     Dosage: 5 MILLIGRAM DAILY; 5 MG P.O. 1-0-0-0
     Route: 048
  8. CALCIUM\CHOLECALCIFEROL [Concomitant]
     Active Substance: CALCIUM\CHOLECALCIFEROL
     Indication: Renal transplant
     Dosage: 1 DOSAGE FORMS DAILY; 500 MG/800 I.E. , FREQUENCY : 1 DAY, 1-0-0-0
     Route: 048
  9. GRAFALON [Concomitant]
     Active Substance: LAPINE T-LYMPHOCYTE IMMUNE GLOBULIN
     Indication: Product used for unknown indication
     Dosage: CUMULATIVELY 1050 MG (CORRESPONDING TO 20 MG/KG BODY WEIGHT)

REACTIONS (2)
  - Leukopenia [Recovered/Resolved]
  - Hepatic enzyme increased [Not Recovered/Not Resolved]

NARRATIVE: CASE EVENT DATE: 20220805
